FAERS Safety Report 7077808-X (Version None)
Quarter: 2010Q4

REPORT INFORMATION
  Report Type: 
  Country: None (occurrence: None)
  Receive Date: 20101101
  Receipt Date: 20101019
  Transmission Date: 20110411
  Serious: Yes (Other)
  Sender: FDA-Public Use
  Company Number: PHHY2010JP68884

PATIENT
  Age: 46 Year
  Sex: Female

DRUGS (3)
  1. ZOMETA [Suspect]
     Indication: METASTASES TO BONE
     Dosage: 112 MG, TOTAL DOSE
     Route: 042
  2. ANTIHYPERTENSIVE DRUGS [Concomitant]
  3. HORMONES [Concomitant]

REACTIONS (1)
  - PERIODONTITIS [None]
